FAERS Safety Report 23580224 (Version 1)
Quarter: 2024Q1

REPORT INFORMATION
  Report Type: Spontaneous
  Country: US (occurrence: US)
  Receive Date: 20240229
  Receipt Date: 20240229
  Transmission Date: 20240410
  Serious: Yes (Other)
  Sender: FDA-Public Use
  Company Number: MIQ-09082023-861(V1)

PATIENT
  Sex: Female

DRUGS (1)
  1. ONZETRA XSAIL [Suspect]
     Active Substance: SUMATRIPTAN SUCCINATE
     Indication: Product used for unknown indication
     Dosage: UNK
     Route: 045

REACTIONS (3)
  - Arrhythmia [Unknown]
  - Throat tightness [Unknown]
  - Dyspnoea [Unknown]
